FAERS Safety Report 9863365 (Version 1)
Quarter: 2014Q1

REPORT INFORMATION
  Report Type: Spontaneous
  Country: US (occurrence: US)
  Receive Date: 20140203
  Receipt Date: 20140203
  Transmission Date: 20141002
  Serious: Yes (Other)
  Sender: FDA-Public Use
  Company Number: US-JNJFOC-20140112519

PATIENT
  Sex: 0

DRUGS (3)
  1. NESIRITIDE [Suspect]
     Indication: CARDIAC FAILURE ACUTE
     Route: 042
  2. DIURETICS [Concomitant]
     Indication: PRODUCT USED FOR UNKNOWN INDICATION
     Route: 042
  3. FUROSEMIDE [Concomitant]
     Indication: PRODUCT USED FOR UNKNOWN INDICATION
     Route: 042

REACTIONS (4)
  - Cardiorenal syndrome [Unknown]
  - Adverse event [Unknown]
  - Hypotension [Unknown]
  - Cardiac failure [Unknown]
